FAERS Safety Report 8027713-7 (Version None)
Quarter: 2012Q1

REPORT INFORMATION
  Report Type: 
  Country: None (occurrence: None)
  Receive Date: 20120106
  Receipt Date: 20111229
  Transmission Date: 20120608
  Serious: Yes (Other)
  Sender: FDA-Public Use
  Company Number: US-AMGEN-USASP2011069894

PATIENT
  Sex: Female

DRUGS (1)
  1. ARANESP [Suspect]
     Indication: HEPATITIS C

REACTIONS (1)
  - APLASIA PURE RED CELL [None]
